FAERS Safety Report 6608594-2 (Version None)
Quarter: 2010Q1

REPORT INFORMATION
  Report Type: 
  Country: None (occurrence: None)
  Receive Date: 20100301
  Receipt Date: 20100219
  Transmission Date: 20100710
  Serious: Yes (Other)
  Sender: FDA-Public Use
  Company Number: GXKR2010US02089

PATIENT
  Age: 9 Year
  Sex: Male

DRUGS (13)
  1. PREDNISONE TAB [Suspect]
     Indication: RASH
     Dosage: UNK
     Route: 048
  2. PREDNISONE TAB [Suspect]
     Dosage: 2.5 MG, Q48H
     Route: 048
  3. CYCLOSPORINE [Suspect]
     Indication: GRAFT VERSUS HOST DISEASE
     Route: 048
  4. CYCLOSPORINE [Suspect]
     Indication: RASH
  5. CO-TRIMOXAZOLE (NGX) [Suspect]
     Route: 065
  6. METHYLPREDNISOLONE [Suspect]
     Indication: GRAFT VERSUS HOST DISEASE
     Route: 065
  7. TACROLIMUS [Suspect]
     Indication: RASH
     Route: 061
  8. THALIDOMIDE [Suspect]
     Indication: RASH
     Dosage: UNK
     Route: 048
  9. THALIDOMIDE [Suspect]
     Dosage: 100 MG/DAY
     Route: 048
  10. DACLIZUMAB [Suspect]
     Indication: RASH
     Route: 048
  11. VORICONAZOLE [Suspect]
     Dosage: 150 MG, BID
     Route: 065
  12. ACYCLOVIR [Concomitant]
  13. AMLODIPINE [Concomitant]

REACTIONS (9)
  - ACTINIC KERATOSIS [None]
  - CHEILITIS [None]
  - EPHELIDES [None]
  - ERYTHEMA [None]
  - LENTIGO [None]
  - PHOTODYNAMIC THERAPY [None]
  - PHOTOSENSITIVITY REACTION [None]
  - RASH PAPULAR [None]
  - SQUAMOUS CELL CARCINOMA [None]
